FAERS Safety Report 21632003 (Version 1)
Quarter: 2022Q4

REPORT INFORMATION
  Report Type: Spontaneous
  Country: US (occurrence: None)
  Receive Date: 20221123
  Receipt Date: 20221123
  Transmission Date: 20230112
  Serious: Yes (Hospitalization, Other)
  Sender: FDA-Public Use
  Company Number: US-Hikma Pharmaceuticals USA Inc.-US-H14001-22-02960

PATIENT
  Age: 39 Year
  Sex: Male
  Weight: 98.4 kg

DRUGS (10)
  1. IFOSFAMIDE [Suspect]
     Active Substance: IFOSFAMIDE
     Indication: Myxoid liposarcoma
     Dosage: UNKNOWN
     Route: 065
     Dates: start: 20220907
  2. IFOSFAMIDE [Suspect]
     Active Substance: IFOSFAMIDE
     Dosage: 1500 MG/M^2 (3500 MG) AT 48.1 ML/HR RATE
     Route: 042
     Dates: start: 20221006, end: 20221010
  3. IFOSFAMIDE [Suspect]
     Active Substance: IFOSFAMIDE
     Dosage: IFOSFAMIDE NEW BAG (48.1 ML/HR RATE)
     Route: 042
     Dates: start: 20221007
  4. IFOSFAMIDE [Suspect]
     Active Substance: IFOSFAMIDE
     Dosage: IFOSFAMIDE NEW BAG (48.1 ML/HR RATE)
     Route: 042
     Dates: start: 20221008
  5. IFOSFAMIDE [Suspect]
     Active Substance: IFOSFAMIDE
     Dosage: IFOSFAMIDE NEW BAG (48.1 ML/HR RATE)
     Route: 042
     Dates: start: 20221009
  6. MESNA [Suspect]
     Active Substance: MESNA
     Indication: Myxoid liposarcoma
     Dosage: 1500 MG/M2 (3500 MG) IN 0.9 % NS, 1155 ML INFUSION
     Route: 042
     Dates: start: 20221006
  7. DOXORUBICIN [Suspect]
     Active Substance: DOXORUBICIN
     Indication: Myxoid liposarcoma
     Dosage: UNKNOWN
     Route: 065
     Dates: start: 20220907
  8. DOXORUBICIN [Suspect]
     Active Substance: DOXORUBICIN
     Dosage: 9 MG/M2 (20MG)
     Route: 042
     Dates: start: 20221006
  9. NEULASTA [Suspect]
     Active Substance: PEGFILGRASTIM
     Indication: Myxoid liposarcoma
     Route: 058
     Dates: start: 20221006
  10. ZOFRAN [Concomitant]
     Active Substance: ONDANSETRON HYDROCHLORIDE
     Indication: Premedication
     Dosage: UNKOWN
     Route: 065

REACTIONS (8)
  - Neurotoxicity [Recovered/Resolved]
  - Somnolence [Unknown]
  - Disorientation [Unknown]
  - Aphasia [Not Recovered/Not Resolved]
  - Confusional state [Unknown]
  - Agitation [Unknown]
  - Memory impairment [Recovering/Resolving]
  - Hospitalisation [Recovered/Resolved]

NARRATIVE: CASE EVENT DATE: 20220915
